FAERS Safety Report 7618250-X (Version None)
Quarter: 2011Q3

REPORT INFORMATION
  Report Type: 
  Country: None (occurrence: None)
  Receive Date: 20110718
  Receipt Date: 20110705
  Transmission Date: 20111222
  Serious: Yes (Other)
  Sender: FDA-Public Use
  Company Number: ZA-VIIV HEALTHCARE LIMITED-B0731437A

PATIENT
  Age: 51 Year
  Sex: Female

DRUGS (5)
  1. STAVUDINE [Suspect]
     Indication: ANTIRETROVIRAL THERAPY
     Route: 065
  2. EFAVIRENZ [Suspect]
     Indication: ANTIRETROVIRAL THERAPY
     Route: 065
  3. MULTI-VITAMINS [Concomitant]
     Route: 065
  4. COTRIM [Concomitant]
     Route: 065
  5. LAMIVUDINE-HIV [Suspect]
     Indication: ANTIRETROVIRAL THERAPY
     Route: 065

REACTIONS (5)
  - IMMUNE RECONSTITUTION SYNDROME [None]
  - SKIN LESION [None]
  - CELL DEATH [None]
  - CD4 LYMPHOCYTES [None]
  - ACUTE FEBRILE NEUTROPHILIC DERMATOSIS [None]
